FAERS Safety Report 9472761 (Version 1)
Quarter: 2013Q3

REPORT INFORMATION
  Report Type: Spontaneous
  Country: US (occurrence: US)
  Receive Date: 20130823
  Receipt Date: 20130823
  Transmission Date: 20140515
  Serious: No
  Sender: FDA-Public Use
  Company Number: US-PFIZER INC-2013242959

PATIENT
  Sex: Female
  Weight: 54.42 kg

DRUGS (2)
  1. EFFEXOR XR [Suspect]
     Indication: DEPRESSION
     Dosage: 150 MG, 1X/DAY
     Route: 048
     Dates: start: 2001
  2. LITHIUM [Concomitant]
     Dosage: UNK

REACTIONS (2)
  - Drug withdrawal syndrome [Unknown]
  - Vomiting [Unknown]
